FAERS Safety Report 18653590 (Version 1)
Quarter: 2020Q4

REPORT INFORMATION
  Report Type: Spontaneous
  Country: RO (occurrence: RO)
  Receive Date: 20201223
  Receipt Date: 20201223
  Transmission Date: 20210114
  Serious: Yes (Other)
  Sender: FDA-Public Use
  Company Number: RO-BAUSCH-BL-2020-036681

PATIENT
  Age: 51 Year
  Sex: Male

DRUGS (13)
  1. DEXAMETHASONE. [Suspect]
     Active Substance: DEXAMETHASONE
     Indication: B-CELL LYMPHOMA
     Dosage: 6 CYCLES R-DHAP
     Route: 065
  2. PREDNISOLONE. [Suspect]
     Active Substance: PREDNISOLONE
     Indication: B-CELL LYMPHOMA
     Dosage: 8 R-CHOP CYCLES
     Route: 065
     Dates: start: 201801, end: 201807
  3. BENDAMUSTINE [Suspect]
     Active Substance: BENDAMUSTINE
     Indication: B-CELL LYMPHOMA
     Dosage: (TD 180MG),D1, 2
     Route: 065
     Dates: start: 20191127
  4. BENDAMUSTINE [Suspect]
     Active Substance: BENDAMUSTINE
     Dosage: 6 CYCLES, D1,2
     Route: 065
     Dates: start: 201912, end: 202004
  5. RITUXIMAB. [Suspect]
     Active Substance: RITUXIMAB
     Dosage: R-DHAP 6 CYCLES
     Route: 065
  6. OBINUTUZUMAB. [Suspect]
     Active Substance: OBINUTUZUMAB
     Indication: B-CELL LYMPHOMA
     Dosage: D1, 8, 15
     Route: 042
     Dates: start: 20191127
  7. OBINUTUZUMAB. [Suspect]
     Active Substance: OBINUTUZUMAB
     Dosage: 6 CYCLES D1
     Route: 042
     Dates: start: 201912, end: 202004
  8. RITUXIMAB. [Suspect]
     Active Substance: RITUXIMAB
     Dosage: MAINTENANCE IMMUNOTHERAPY
     Route: 058
  9. VINCRISTINE [Suspect]
     Active Substance: VINCRISTINE
     Indication: B-CELL LYMPHOMA
     Dosage: 8 R-CHOP CYCLES
     Route: 065
     Dates: start: 201801, end: 201807
  10. DOXORUBICIN [Suspect]
     Active Substance: DOXORUBICIN
     Indication: B-CELL LYMPHOMA
     Dosage: 8 R-CHOP CYCLES
     Route: 065
     Dates: start: 201801, end: 201807
  11. RITUXIMAB. [Suspect]
     Active Substance: RITUXIMAB
     Indication: B-CELL LYMPHOMA
     Dosage: 8 R-CHOP CYCLES
     Route: 065
     Dates: start: 201801, end: 201807
  12. CISPLATIN. [Suspect]
     Active Substance: CISPLATIN
     Indication: B-CELL LYMPHOMA
     Dosage: 6 CYCLES R-DHAP
     Route: 065
  13. CYCLOPHOSPHAMIDE. [Suspect]
     Active Substance: CYCLOPHOSPHAMIDE
     Indication: B-CELL LYMPHOMA
     Dosage: 8 R-CHOP CYCLES
     Route: 065
     Dates: start: 201801, end: 201807

REACTIONS (4)
  - Metabolic disorder [Unknown]
  - Neoplasm [Unknown]
  - Therapy partial responder [Unknown]
  - Hyperglycaemia [Unknown]

NARRATIVE: CASE EVENT DATE: 201801
